FAERS Safety Report 23971486 (Version 1)
Quarter: 2024Q2

REPORT INFORMATION
  Report Type: Spontaneous
  Country: DE (occurrence: DE)
  Receive Date: 20240613
  Receipt Date: 20240613
  Transmission Date: 20240715
  Serious: Yes (Other)
  Sender: FDA-Public Use
  Company Number: None

PATIENT
  Age: 72 Year
  Sex: Male
  Weight: 69 kg

DRUGS (1)
  1. CAPECITABINE [Suspect]
     Active Substance: CAPECITABINE
     Indication: Neoadjuvant therapy
     Dosage: CAPECITABINE 500MG
     Dates: start: 202402, end: 202405

REACTIONS (1)
  - Ophthalmoplegia [Recovering/Resolving]

NARRATIVE: CASE EVENT DATE: 20240521
